FAERS Safety Report 23578502 (Version 1)
Quarter: 2024Q1

REPORT INFORMATION
  Report Type: Spontaneous
  Country: US (occurrence: US)
  Receive Date: 20240229
  Receipt Date: 20240229
  Transmission Date: 20240410
  Serious: Yes (Hospitalization, Other)
  Sender: FDA-Public Use
  Company Number: US-SUN PHARMACEUTICAL INDUSTRIES LTD-2024R1-433235

PATIENT
  Age: 50 Year
  Sex: Male

DRUGS (2)
  1. CLONIDINE [Suspect]
     Active Substance: CLONIDINE
     Indication: Insomnia
     Dosage: UNK
     Route: 065
  2. OLANZAPINE [Suspect]
     Active Substance: OLANZAPINE
     Indication: Insomnia
     Dosage: UNK
     Route: 065

REACTIONS (4)
  - Drug dependence [Unknown]
  - Mental status changes [Recovering/Resolving]
  - Drug withdrawal syndrome [Unknown]
  - Off label use [Unknown]
